FAERS Safety Report 8572099-2 (Version None)
Quarter: 2012Q3

REPORT INFORMATION
  Report Type: 
  Country: None (occurrence: None)
  Receive Date: 20120806
  Receipt Date: 20120802
  Transmission Date: 20120928
  Serious: Yes (Other)
  Sender: FDA-Public Use
  Company Number: PHHY2012FR066972

PATIENT
  Age: 30 Year
  Sex: Female

DRUGS (4)
  1. NOCTAMID [Concomitant]
     Dosage: 2 MG, DAILY
  2. LORAZEPAM [Concomitant]
     Dosage: 7.5 MG, DAILY
  3. TEGRETOL [Suspect]
     Indication: BIPOLAR DISORDER
     Dosage: 300 MG, DAILY
  4. ESCITALOPRAM [Concomitant]
     Dosage: 20 MG, DAILY

REACTIONS (2)
  - MATERNAL EXPOSURE TIMING UNSPECIFIED [None]
  - ABORTION SPONTANEOUS [None]
